FAERS Safety Report 21269878 (Version 1)
Quarter: 2022Q3

REPORT INFORMATION
  Report Type: Spontaneous
  Country: FR (occurrence: FR)
  Receive Date: 20220830
  Receipt Date: 20220830
  Transmission Date: 20221027
  Serious: Yes (Hospitalization)
  Sender: FDA-Public Use
  Company Number: FR-NOVARTISPH-NVSC2022FR194760

PATIENT
  Age: 49 Year
  Sex: Male
  Weight: 54 kg

DRUGS (8)
  1. TEGRETOL [Suspect]
     Active Substance: CARBAMAZEPINE
     Indication: Wrong patient received product
     Dosage: 1 DOSAGE FORM, QD
     Route: 048
     Dates: start: 20220318, end: 20220318
  2. RISPERDAL [Suspect]
     Active Substance: RISPERIDONE
     Indication: Wrong patient received product
     Dosage: 1 DOSAGE FORM, QD, (SCORED FILM-COATED TABLET)
     Route: 048
     Dates: start: 20220318, end: 20220318
  3. KEPPRA [Suspect]
     Active Substance: LEVETIRACETAM
     Indication: Wrong patient received product
     Dosage: 1 DOSAGE FORM, QD
     Route: 048
     Dates: start: 20220318, end: 20220318
  4. DOXYCYCLINE [Suspect]
     Active Substance: DOXYCYCLINE
     Indication: Wrong patient received product
     Dosage: 1 DOSAGE FORM
     Route: 048
     Dates: start: 20220318, end: 20220318
  5. ZONEGRAN [Concomitant]
     Active Substance: ZONISAMIDE
     Indication: Anxiety
     Dosage: 4 DOSAGE FORM, QD, (2 IN THE MORNING AND 2 IN THE EVENING)
     Route: 048
     Dates: start: 20220317
  6. ZONEGRAN [Concomitant]
     Active Substance: ZONISAMIDE
     Dosage: 4 DOSAGE FORM, QD
     Route: 048
     Dates: start: 20220319
  7. OROCAL VITAMINE D3 [Concomitant]
     Indication: Vitamin D deficiency
     Dosage: QD, 500 MG/200 U.I., TABLETS TO BE SUCK, (1 IN THE MORNING)
     Route: 048
     Dates: start: 20220317
  8. OROCAL VITAMINE D3 [Concomitant]
     Dosage: QD, 500 MG/200 U.I., TABLETS TO BE SUCK, ()1 IN THE MORNING
     Route: 048
     Dates: start: 20220319

REACTIONS (2)
  - Epilepsy [Recovered/Resolved]
  - Wrong patient received product [Recovered/Resolved]

NARRATIVE: CASE EVENT DATE: 20220318
